FAERS Safety Report 22048149 (Version 2)
Quarter: 2023Q1

REPORT INFORMATION
  Report Type: Spontaneous
  Country: US (occurrence: US)
  Receive Date: 20230301
  Receipt Date: 20230302
  Transmission Date: 20230417
  Serious: Yes (Hospitalization, Other)
  Sender: FDA-Public Use
  Company Number: US-SANOFI-01507301

PATIENT
  Age: 59 Year
  Sex: Female

DRUGS (1)
  1. DUPIXENT [Suspect]
     Active Substance: DUPILUMAB
     Indication: Asthma
     Dosage: UNK
     Route: 065

REACTIONS (6)
  - Haemorrhagic transformation stroke [Recovering/Resolving]
  - Ischaemic stroke [Recovering/Resolving]
  - Hemiparaesthesia [Recovering/Resolving]
  - Hemiparesis [Recovering/Resolving]
  - Eosinophilia [Recovered/Resolved]
  - Hypereosinophilic syndrome [Recovering/Resolving]
